FAERS Safety Report 6943687-1 (Version None)
Quarter: 2010Q3

REPORT INFORMATION
  Report Type: 
  Country: None (occurrence: None)
  Receive Date: 20100826
  Receipt Date: 20100812
  Transmission Date: 20110219
  Serious: Yes (Hospitalization, Other)
  Sender: FDA-Public Use
  Company Number: US-ELI_LILLY_AND_COMPANY-US201008005210

PATIENT
  Sex: Male

DRUGS (1)
  1. EFFIENT [Suspect]

REACTIONS (1)
  - THROMBOTIC THROMBOCYTOPENIC PURPURA [None]
